FAERS Safety Report 7960354-6 (Version None)
Quarter: 2011Q4

REPORT INFORMATION
  Report Type: 
  Country: None (occurrence: None)
  Receive Date: 20111201
  Receipt Date: 20111118
  Transmission Date: 20120403
  Serious: Yes (Hospitalization, Other)
  Sender: FDA-Public Use
  Company Number: AUR-APL-2011-05915

PATIENT
  Age: 70 Year
  Sex: Male

DRUGS (4)
  1. CARVEDILOL [Suspect]
     Indication: PRODUCT USED FOR UNKNOWN INDICATION
  2. SPIRONOLACTONE [Suspect]
     Indication: PRODUCT USED FOR UNKNOWN INDICATION
  3. INSULIN [Concomitant]
  4. VALSARTAN [Suspect]
     Indication: PRODUCT USED FOR UNKNOWN INDICATION

REACTIONS (12)
  - BLOOD PRESSURE DECREASED [None]
  - SINUS ARREST [None]
  - RESPIRATORY DISTRESS [None]
  - NODAL RHYTHM [None]
  - ASTHENIA [None]
  - HAEMOGLOBIN DECREASED [None]
  - ATRIOVENTRICULAR BLOCK COMPLETE [None]
  - BLOOD POTASSIUM INCREASED [None]
  - ATRIOVENTRICULAR BLOCK SECOND DEGREE [None]
  - BLOOD GLUCOSE INCREASED [None]
  - OEDEMA [None]
  - RENAL FAILURE [None]
